FAERS Safety Report 8191958-6 (Version None)
Quarter: 2012Q1

REPORT INFORMATION
  Report Type: 
  Country: None (occurrence: None)
  Receive Date: 20120307
  Receipt Date: 20120302
  Transmission Date: 20120608
  Serious: Yes (Hospitalization)
  Sender: FDA-Public Use
  Company Number: PHHY2010AU25553

PATIENT
  Sex: Female

DRUGS (4)
  1. CLOZARIL [Suspect]
     Dosage: 600 MG, UNK
     Dates: start: 20070220
  2. CLOZARIL [Suspect]
     Dosage: 500 MG, UNK
     Dates: start: 20070220
  3. CLOZARIL [Suspect]
     Dosage: 500 MG, UNK
     Dates: start: 20070208, end: 20100419
  4. CLOZARIL [Suspect]
     Dosage: 50 MG, UNK
     Dates: start: 20070220

REACTIONS (2)
  - SCHIZOPHRENIA [None]
  - MENTAL DISORDER [None]
